FAERS Safety Report 5076499-7 (Version None)
Quarter: 2006Q3

REPORT INFORMATION
  Report Type: 
  Country: None (occurrence: None)
  Receive Date: 20060725
  Receipt Date: 20060525
  Transmission Date: 20061208
  Serious: No
  Sender: FDA-Public Use
  Company Number: 200613634BWH

PATIENT
  Age: 75 Year
  Sex: Male

DRUGS (11)
  1. NEXAVAR [Suspect]
     Indication: RENAL CELL CARCINOMA STAGE UNSPECIFIED
     Dosage: 400 MG, BID, ORAL
     Route: 048
     Dates: start: 20060213
  2. ENALAPRIL MALEATE [Concomitant]
  3. LOVASTATIN [Concomitant]
  4. ASPIRIN [Concomitant]
  5. HYDROCHLOROTHIAZIDE [Concomitant]
  6. ZOLOFT [Concomitant]
  7. LORAZEPAM [Concomitant]
  8. TRAZODONE HCL [Concomitant]
  9. MULTI-VITAMIN [Concomitant]
  10. ZOMETA [Concomitant]
  11. CITRACAL [Concomitant]

REACTIONS (6)
  - ALOPECIA [None]
  - CHEST DISCOMFORT [None]
  - DIARRHOEA [None]
  - GASTROOESOPHAGEAL REFLUX DISEASE [None]
  - PRURITUS GENERALISED [None]
  - SINUS HEADACHE [None]
